FAERS Safety Report 23325824 (Version 2)
Quarter: 2023Q4

REPORT INFORMATION
  Report Type: Report from Study
  Country: US (occurrence: US)
  Receive Date: 20231221
  Receipt Date: 20231229
  Transmission Date: 20240110
  Serious: No
  Sender: FDA-Public Use
  Company Number: US-ABBVIE-5551119

PATIENT
  Age: 67 Year
  Sex: Male
  Weight: 124.73 kg

DRUGS (3)
  1. SKYRIZI [Suspect]
     Active Substance: RISANKIZUMAB-RZAA
     Indication: Psoriasis
     Dosage: UNKNOWN
     Route: 058
     Dates: start: 20231116, end: 20231116
  2. SKYRIZI [Suspect]
     Active Substance: RISANKIZUMAB-RZAA
     Dosage: UNKNOWN
     Route: 058
     Dates: start: 20231219
  3. TYLENOL [Concomitant]
     Active Substance: ACETAMINOPHEN
     Indication: Burning sensation

REACTIONS (3)
  - Skin burning sensation [Recovered/Resolved]
  - Pyrexia [Recovered/Resolved]
  - Injection site pain [Recovered/Resolved]

NARRATIVE: CASE EVENT DATE: 20231219
